FAERS Safety Report 7535548 (Version 5)
Quarter: 2013Q3

REPORT INFORMATION
  Report Type: Spontaneous
  Country: JP (occurrence: JP)
  Receive Date: 20100810
  Receipt Date: 20130723
  Transmission Date: 20140515
  Serious: Yes (Death, Hospitalization, Other)
  Sender: FDA-Public Use
  Company Number: PHHY2010JP51294

PATIENT
  Age: 61 Year
  Sex: Female

DRUGS (3)
  1. CICLOSPORIN [Suspect]
     Indication: APLASTIC ANAEMIA
     Dosage: 200 MG, UNK
     Route: 048
  2. CEFEPIME [Suspect]
     Indication: FEBRILE NEUTROPENIA
  3. PREDNISOLONE [Concomitant]
     Dosage: 30 MG, PER DAY
     Route: 048

REACTIONS (18)
  - Pelvic abscess [Fatal]
  - Febrile neutropenia [Unknown]
  - Plasmacytosis [Recovering/Resolving]
  - Abdominal pain [Unknown]
  - White blood cell count increased [Unknown]
  - Drug eruption [Recovering/Resolving]
  - Rash erythematous [Recovering/Resolving]
  - Pyrexia [Unknown]
  - Uterine cancer [Unknown]
  - Salpingo-oophoritis [Unknown]
  - Abdominal tenderness [Unknown]
  - Pancytopenia [Unknown]
  - Vaginal haemorrhage [Unknown]
  - Uterine inflammation [Unknown]
  - Local swelling [Unknown]
  - Squamous cell carcinoma [Unknown]
  - Uterine infection [Unknown]
  - Drug ineffective [Unknown]
